FAERS Safety Report 15825370 (Version 4)
Quarter: 2019Q2

REPORT INFORMATION
  Report Type: Spontaneous
  Country: US (occurrence: US)
  Receive Date: 20190115
  Receipt Date: 20190423
  Transmission Date: 20190711
  Serious: No
  Sender: FDA-Public Use
  Company Number: US-BAYER-2019-010077

PATIENT
  Age: 70 Year
  Sex: Male
  Weight: 95 kg

DRUGS (7)
  1. MIRALAX [Suspect]
     Active Substance: POLYETHYLENE GLYCOL 3350
     Indication: GASTRIC DISORDER
     Dosage: 1 TIME
     Route: 048
     Dates: start: 201806
  2. MIRALAX [Suspect]
     Active Substance: POLYETHYLENE GLYCOL 3350
     Indication: COLONOSCOPY
     Dosage: 17 G, QD
     Dates: start: 20190111
  3. SIMVASTATIN. [Concomitant]
     Active Substance: SIMVASTATIN
  4. METOPROLOL. [Concomitant]
     Active Substance: METOPROLOL
     Indication: HYPERTENSION
  5. MIRALAX [Suspect]
     Active Substance: POLYETHYLENE GLYCOL 3350
     Indication: GASTROINTESTINAL DISORDER
     Dosage: 17 G, QD
     Route: 048
     Dates: start: 2017
  6. MULTIVITAMIN [VITAMINS NOS] [Concomitant]
  7. MINOCYCLINE [Concomitant]
     Active Substance: MINOCYCLINE\MINOCYCLINE HYDROCHLORIDE

REACTIONS (9)
  - Product use in unapproved indication [Unknown]
  - Product taste abnormal [Unknown]
  - Poor quality product administered [Unknown]
  - Product use in unapproved indication [Unknown]
  - Poor quality product administered [None]
  - Product use issue [Unknown]
  - Incorrect dose administered [Unknown]
  - Off label use [Unknown]
  - Off label use [Unknown]

NARRATIVE: CASE EVENT DATE: 2017
